FAERS Safety Report 10304831 (Version 1)
Quarter: 2014Q3

REPORT INFORMATION
  Report Type: Spontaneous
  Country: FR (occurrence: None)
  Receive Date: 20140710
  Receipt Date: 20140710
  Transmission Date: 20150326
  Serious: Yes (Hospitalization)
  Sender: FDA-Public Use
  Company Number: FK201402611

PATIENT
  Age: 50 Year
  Sex: Female

DRUGS (5)
  1. GENTAMICIN [Suspect]
     Active Substance: GENTAMICIN
     Indication: PRODUCT USED FOR UNKNOWN INDICATION
  2. CEFTRIAXON [Suspect]
     Active Substance: CEFTRIAXONE
     Indication: ANTIBIOTIC THERAPY
     Dosage: NOT OTHERWISE SPECIFIED
     Route: 042
     Dates: start: 20130223, end: 20130223
  3. CLARITHROMYCIN (CLARITHROMYCIN) (CLARITHROMYCIN) [Concomitant]
  4. OLMETEC (OLMESARTAN MEDOXOMIL) (OLMESARTAN MEDOXOMIL) [Concomitant]
  5. BROMAZEPAM (BROMAZEPAM) (BROMAZEPAM) [Concomitant]

REACTIONS (1)
  - Anaphylactic shock [None]

NARRATIVE: CASE EVENT DATE: 20130223
